FAERS Safety Report 13602893 (Version 1)
Quarter: 2017Q2

REPORT INFORMATION
  Report Type: Other
  Country: None (occurrence: US)
  Receive Date: 20170601
  Receipt Date: 20170601
  Transmission Date: 20170830
  Serious: Yes (Hospitalization)
  Sender: FDA-Public Use
  Company Number: US-AIRGAS USA-2021466

PATIENT
  Sex: Female

DRUGS (1)
  1. OXYGEN 100% [Suspect]
     Active Substance: OXYGEN
     Indication: PRODUCT USED FOR UNKNOWN INDICATION

REACTIONS (4)
  - Accident [Unknown]
  - Thermal burn [Unknown]
  - Intentional product misuse [Unknown]
  - Respiratory fume inhalation disorder [Unknown]
